FAERS Safety Report 4770352-1 (Version None)
Quarter: 2005Q3

REPORT INFORMATION
  Report Type: 
  Country: None (occurrence: None)
  Receive Date: 20050915
  Receipt Date: 20050503
  Transmission Date: 20060218
  Serious: No
  Sender: FDA-Public Use
  Company Number: US-GLAXOSMITHKLINE-A0557046A

PATIENT
  Age: 47 Year
  Sex: Female

DRUGS (1)
  1. ABREVA [Suspect]
     Dates: start: 20050502, end: 20050503

REACTIONS (2)
  - HERPES SIMPLEX [None]
  - SWELLING FACE [None]
